FAERS Safety Report 20226866 (Version 1)
Quarter: 2021Q4

REPORT INFORMATION
  Report Type: Spontaneous
  Country: GB (occurrence: GB)
  Receive Date: 20211224
  Receipt Date: 20211224
  Transmission Date: 20220304
  Serious: Yes (Other)
  Sender: FDA-Public Use
  Company Number: None

PATIENT
  Age: 53 Year
  Sex: Female
  Weight: 69.39 kg

DRUGS (1)
  1. LEVOTHYROXINE SODIUM [Suspect]
     Active Substance: LEVOTHYROXINE SODIUM
     Indication: Thyroidectomy
     Dosage: 75MCG
     Route: 048
     Dates: start: 20210203, end: 20210919

REACTIONS (1)
  - Dry eye [Recovering/Resolving]

NARRATIVE: CASE EVENT DATE: 20210312
